FAERS Safety Report 7699461-4 (Version None)
Quarter: 2011Q3

REPORT INFORMATION
  Report Type: 
  Country: None (occurrence: None)
  Receive Date: 20110820
  Receipt Date: 20110104
  Transmission Date: 20111222
  Serious: Yes (Other)
  Sender: FDA-Public Use
  Company Number: US-ALLERGAN-1015680US

PATIENT
  Age: 75 Year
  Sex: Male
  Weight: 69.841 kg

DRUGS (7)
  1. SIMVASTATIN [Concomitant]
     Indication: BLOOD CHOLESTEROL INCREASED
     Dosage: 20 MG, QD
     Route: 048
  2. FISH OIL [Concomitant]
     Dosage: UNK
  3. ARICEPT [Concomitant]
     Indication: MEMORY IMPAIRMENT
     Dosage: UNK
     Dates: start: 20101027, end: 20101027
  4. SANCTURA XR [Suspect]
     Indication: HYPERTONIC BLADDER
  5. DILTIAZEM [Concomitant]
     Indication: PRODUCT USED FOR UNKNOWN INDICATION
     Dosage: 240 MG, QD
     Route: 048
  6. SANCTURA XR [Suspect]
     Indication: NOCTURIA
     Dosage: 60 MG, QD
     Route: 048
     Dates: start: 20101018, end: 20101117
  7. ASPIRIN [Concomitant]
     Dosage: UNK
     Route: 048

REACTIONS (1)
  - URINARY RETENTION [None]
